FAERS Safety Report 23447626 (Version 1)
Quarter: 2024Q1

REPORT INFORMATION
  Report Type: Spontaneous
  Country: JP (occurrence: JP)
  Receive Date: 20240126
  Receipt Date: 20240126
  Transmission Date: 20240410
  Serious: Yes (Other)
  Sender: FDA-Public Use
  Company Number: JP-PFIZER INC-202400023541

PATIENT
  Age: 77 Year
  Sex: Female

DRUGS (1)
  1. LORLATINIB [Suspect]
     Active Substance: LORLATINIB
     Indication: Metastatic neoplasm
     Dosage: UNK, 1ST LINE TREATMENT
     Route: 048

REACTIONS (1)
  - Hallucinations, mixed [Recovering/Resolving]
